FAERS Safety Report 25330280 (Version 2)
Quarter: 2025Q3

REPORT INFORMATION
  Report Type: Spontaneous
  Country: LY (occurrence: LY)
  Receive Date: 20250519
  Receipt Date: 20250707
  Transmission Date: 20251020
  Serious: Yes (Death, Hospitalization, Other)
  Sender: SANOFI AVENTIS
  Company Number: LY-SA-2025SA141226

PATIENT
  Age: 17 Year
  Sex: Male

DRUGS (1)
  1. CEREZYME [Suspect]
     Active Substance: IMIGLUCERASE
     Indication: Gaucher^s disease type III
     Route: 065

REACTIONS (10)
  - Epistaxis [Fatal]
  - Gingival bleeding [Fatal]
  - Rectal haemorrhage [Fatal]
  - Vomiting [Fatal]
  - Seizure [Fatal]
  - Oedema [Fatal]
  - Hypersplenism [Fatal]
  - Pancytopenia [Fatal]
  - Splenomegaly [Fatal]
  - Product use in unapproved indication [Unknown]
